FAERS Safety Report 16935963 (Version 1)
Quarter: 2019Q4

REPORT INFORMATION
  Report Type: Spontaneous
  Country: US (occurrence: US)
  Receive Date: 20191018
  Receipt Date: 20191018
  Transmission Date: 20200122
  Serious: Yes (Disabling)
  Sender: FDA-Public Use
  Company Number: None

PATIENT
  Age: 57 Year
  Sex: Female
  Weight: 69.75 kg

DRUGS (1)
  1. CIPROFLOXACIN. [Suspect]
     Active Substance: CIPROFLOXACIN
     Indication: DIARRHOEA INFECTIOUS
     Dosage: ?          QUANTITY:1 TABLET(S);?
     Route: 048
     Dates: start: 20140605, end: 20140608

REACTIONS (5)
  - Musculoskeletal pain [None]
  - Impaired work ability [None]
  - Muscle spasms [None]
  - Mobility decreased [None]
  - Tendonitis [None]

NARRATIVE: CASE EVENT DATE: 20140606
